FAERS Safety Report 13643803 (Version 7)
Quarter: 2017Q3

REPORT INFORMATION
  Report Type: Report from Study
  Country: US (occurrence: US)
  Receive Date: 20170612
  Receipt Date: 20170811
  Transmission Date: 20171127
  Serious: Yes (Hospitalization, Other)
  Sender: FDA-Public Use
  Company Number: US-JNJFOC-20170606012

PATIENT
  Age: 13 Year
  Sex: Female
  Weight: 40.9 kg

DRUGS (10)
  1. REMICADE [Suspect]
     Active Substance: INFLIXIMAB
     Indication: INFLAMMATORY BOWEL DISEASE
     Route: 042
  2. ZANTAC [Concomitant]
     Active Substance: RANITIDINE HYDROCHLORIDE
     Route: 065
  3. REMICADE [Suspect]
     Active Substance: INFLIXIMAB
     Indication: INFLAMMATORY BOWEL DISEASE
     Route: 042
     Dates: start: 20161228
  4. REMICADE [Suspect]
     Active Substance: INFLIXIMAB
     Indication: CROHN^S DISEASE
     Route: 042
  5. REMICADE [Suspect]
     Active Substance: INFLIXIMAB
     Indication: CROHN^S DISEASE
     Route: 042
     Dates: start: 20161228
  6. REMICADE [Suspect]
     Active Substance: INFLIXIMAB
     Indication: CROHN^S DISEASE
     Route: 042
     Dates: start: 20160212
  7. 5-ASA [Concomitant]
     Active Substance: MESALAMINE
     Route: 048
  8. REMICADE [Suspect]
     Active Substance: INFLIXIMAB
     Indication: INFLAMMATORY BOWEL DISEASE
     Route: 042
     Dates: start: 20160212
  9. FERROUS SULFATE. [Concomitant]
     Active Substance: FERROUS SULFATE
     Route: 065
  10. MIRALAX [Concomitant]
     Active Substance: POLYETHYLENE GLYCOL 3350
     Route: 065

REACTIONS (3)
  - Intestinal fistula [Recovered/Resolved]
  - Intestinal obstruction [Recovered/Resolved]
  - Malnutrition [Recovered/Resolved]

NARRATIVE: CASE EVENT DATE: 20161024
